FAERS Safety Report 21142030 (Version 1)
Quarter: 2022Q3

REPORT INFORMATION
  Report Type: Spontaneous
  Country: CA (occurrence: None)
  Receive Date: 20220727
  Receipt Date: 20220727
  Transmission Date: 20221026
  Serious: Yes (unspecified)
  Sender: FDA-Public Use
  Company Number: None

PATIENT
  Age: 32 Year
  Sex: Male
  Weight: 96.75 kg

DRUGS (1)
  1. VASOCAINE [Suspect]
     Active Substance: EPINEPHRINE HYDROCHLORIDE\LIDOCAINE HYDROCHLORIDE
     Indication: Pain
     Route: 061

REACTIONS (2)
  - Palpitations [None]
  - Loss of consciousness [None]

NARRATIVE: CASE EVENT DATE: 20220721
